FAERS Safety Report 24177168 (Version 1)
Quarter: 2024Q3

REPORT INFORMATION
  Report Type: Spontaneous
  Country: US (occurrence: US)
  Receive Date: 20240806
  Receipt Date: 20240806
  Transmission Date: 20241016
  Serious: No
  Sender: AMNEAL
  Company Number: US-AMNEAL-2024-AMRX-01265

PATIENT
  Sex: Female
  Weight: 68.027 kg

DRUGS (2)
  1. BACLOFEN [Suspect]
     Active Substance: BACLOFEN
     Indication: Product used for unknown indication
     Dosage: 480 MCG/DAY
     Route: 037
     Dates: start: 202308
  2. BACLOFEN [Suspect]
     Active Substance: BACLOFEN
     Dosage: 1000 MCG/DAY
     Route: 037

REACTIONS (2)
  - Muscle spasticity [Not Recovered/Not Resolved]
  - Drug ineffective [Unknown]

NARRATIVE: CASE EVENT DATE: 20240101
